FAERS Safety Report 20629354 (Version 1)
Quarter: 2022Q1

REPORT INFORMATION
  Report Type: Spontaneous
  Country: CA (occurrence: CA)
  Receive Date: 20220323
  Receipt Date: 20220323
  Transmission Date: 20220423
  Serious: Yes (Hospitalization)
  Sender: FDA-Public Use
  Company Number: CA-PFIZER INC-202200402740

PATIENT
  Age: 42 Year
  Sex: Male

DRUGS (1)
  1. SOMATROPIN [Suspect]
     Active Substance: SOMATROPIN
     Dosage: UNK
     Route: 058

REACTIONS (4)
  - Dizziness [Recovered/Resolved]
  - Feeling hot [Recovered/Resolved]
  - Inner ear inflammation [Recovered/Resolved]
  - Nausea [Recovered/Resolved]
